FAERS Safety Report 7989604-7 (Version None)
Quarter: 2011Q4

REPORT INFORMATION
  Report Type: 
  Country: None (occurrence: None)
  Receive Date: 20111219
  Receipt Date: 20101220
  Transmission Date: 20120403
  Serious: No
  Sender: FDA-Public Use
  Company Number: US-ASTRAZENECA-2010SE60003

PATIENT
  Age: 66 Year
  Sex: Female

DRUGS (1)
  1. CRESTOR [Suspect]
     Indication: HYPERCHOLESTEROLAEMIA
     Route: 048
     Dates: start: 20101115

REACTIONS (7)
  - PARAESTHESIA [None]
  - NASOPHARYNGITIS [None]
  - COUGH [None]
  - BLOOD PRESSURE INCREASED [None]
  - FEELING JITTERY [None]
  - HEART RATE INCREASED [None]
  - NERVOUSNESS [None]
